FAERS Safety Report 18718425 (Version 1)
Quarter: 2021Q1

REPORT INFORMATION
  Report Type: Report from Study
  Country: CO (occurrence: CO)
  Receive Date: 20210108
  Receipt Date: 20210108
  Transmission Date: 20210419
  Serious: Yes (Other)
  Sender: FDA-Public Use
  Company Number: CO-EMD SERONO-9127601

PATIENT
  Age: 10 Year
  Sex: Female

DRUGS (2)
  1. SAIZEN [Suspect]
     Active Substance: SOMATROPIN
     Dosage: RESTARTED WITH UNKNOWN DOSE ON UNKNOWN DATE
     Route: 058
     Dates: end: 20201023
  2. SAIZEN [Suspect]
     Active Substance: SOMATROPIN
     Indication: GROWTH HORMONE DEFICIENCY
     Route: 058
     Dates: start: 20191018, end: 20191106

REACTIONS (8)
  - Enchondromatosis [Unknown]
  - Intracranial pressure increased [Recovered/Resolved]
  - Visual impairment [Unknown]
  - Injection site haemorrhage [Unknown]
  - Arthralgia [Unknown]
  - Scoliosis [Not Recovered/Not Resolved]
  - Abdominal pain [Unknown]
  - Limb asymmetry [Not Recovered/Not Resolved]

NARRATIVE: CASE EVENT DATE: 2019
